FAERS Safety Report 10651445 (Version 2)
Quarter: 2014Q4

REPORT INFORMATION
  Report Type: Spontaneous
  Country: JP (occurrence: JP)
  Receive Date: 20141215
  Receipt Date: 20141230
  Transmission Date: 20150529
  Serious: Yes (Death)
  Sender: FDA-Public Use
  Company Number: JP-JNJFOC-20141204509

PATIENT
  Sex: Male
  Weight: 63.49 kg

DRUGS (7)
  1. LUPRAC [Concomitant]
     Active Substance: TORSEMIDE
     Route: 048
  2. MAINTATE [Concomitant]
     Active Substance: BISOPROLOL FUMARATE
     Route: 048
  3. XARELTO [Suspect]
     Active Substance: RIVAROXABAN
     Indication: THROMBOSIS PROPHYLAXIS
     Route: 048
     Dates: start: 20140916, end: 20140919
  4. BAYASPIRIN [Suspect]
     Active Substance: ASPIRIN
     Indication: PERICARDITIS
     Route: 048
     Dates: start: 20140914, end: 20140918
  5. NEXIUM [Concomitant]
     Active Substance: ESOMEPRAZOLE MAGNESIUM
     Route: 048
  6. PLAVIX [Suspect]
     Active Substance: CLOPIDOGREL BISULFATE
     Indication: THROMBOSIS PROPHYLAXIS
     Route: 048
     Dates: start: 20140919, end: 20140919
  7. TIABENDAZOLE [Concomitant]
     Route: 048

REACTIONS (2)
  - Acute myocardial infarction [Fatal]
  - Myocardial rupture [Fatal]
